FAERS Safety Report 25060202 (Version 1)
Quarter: 2025Q1

REPORT INFORMATION
  Report Type: Report from Study
  Country: CN (occurrence: CN)
  Receive Date: 20250310
  Receipt Date: 20250310
  Transmission Date: 20250409
  Serious: Yes (Hospitalization)
  Sender: PFIZER
  Company Number: CN-PFIZER INC-PV202500024855

PATIENT
  Age: 57 Year
  Sex: Male
  Weight: 53 kg

DRUGS (7)
  1. PACLITAXEL [Suspect]
     Active Substance: PACLITAXEL
     Indication: Non-small cell lung cancer stage III
     Route: 042
     Dates: start: 20220426, end: 20220426
  2. PACLITAXEL [Suspect]
     Active Substance: PACLITAXEL
     Route: 042
     Dates: start: 20220524, end: 20220721
  3. CARBOPLATIN [Suspect]
     Active Substance: CARBOPLATIN
     Indication: Non-small cell lung cancer stage III
     Route: 042
     Dates: start: 20220426, end: 20220426
  4. CARBOPLATIN [Suspect]
     Active Substance: CARBOPLATIN
     Route: 042
     Dates: start: 20220524, end: 20220721
  5. ALUMINIUM OXIDE [Concomitant]
     Indication: Gastric ulcer
     Dosage: 20 G, DAILY
     Dates: start: 201501
  6. HERBALS [Concomitant]
     Active Substance: HERBALS
     Indication: Renal disorder prophylaxis
     Dosage: 0.5 G, 4X/DAY (QID)
     Dates: start: 20220421
  7. COATED ALDEHYDE OXYSTARCH [Concomitant]
     Indication: Nephroprotective therapy
     Dosage: 3.75 G, 3X/DAY (TID)
     Dates: start: 20220426, end: 20220519

REACTIONS (1)
  - Alanine aminotransferase increased [Recovered/Resolved]

NARRATIVE: CASE EVENT DATE: 20220519
